FAERS Safety Report 21903788 (Version 1)
Quarter: 2023Q1

REPORT INFORMATION
  Report Type: Spontaneous
  Country: FR (occurrence: FR)
  Receive Date: 20230124
  Receipt Date: 20230124
  Transmission Date: 20230418
  Serious: Yes (Hospitalization)
  Sender: FDA-Public Use
  Company Number: None

PATIENT
  Age: 70 Year
  Sex: Male
  Weight: 106 kg

DRUGS (5)
  1. CEFOTAXIME [Suspect]
     Active Substance: CEFOTAXIME SODIUM
     Indication: Endocarditis
     Dosage: INCREASE TO 9G/DAY ON 3 NOVEMBER THEN TO 15G/DAY ON 17 NOVEMBER
     Route: 042
     Dates: start: 20221101, end: 20221124
  2. CASPOFUNGIN [Suspect]
     Active Substance: CASPOFUNGIN
     Indication: Product used for unknown indication
     Dosage: 140 MILLIGRAM, QD
     Route: 042
     Dates: start: 20221118, end: 20221122
  3. KEYTRUDA [Suspect]
     Active Substance: PEMBROLIZUMAB
     Indication: Nodular melanoma
     Dosage: 400 MILLIGRAM, 6 WEEKS
     Route: 042
     Dates: start: 20220909, end: 20220909
  4. MEROPENEM [Concomitant]
     Active Substance: MEROPENEM
     Indication: Endocarditis
     Dosage: UNK
     Route: 042
     Dates: start: 20221118
  5. CLINDAMYCIN HYDROCHLORIDE [Concomitant]
     Active Substance: CLINDAMYCIN HYDROCHLORIDE
     Indication: Arthritis infective
     Dosage: 600 MILLIGRAM, Q6H
     Route: 042
     Dates: start: 20221113

REACTIONS (1)
  - Neutropenia [Recovering/Resolving]

NARRATIVE: CASE EVENT DATE: 20221101
